FAERS Safety Report 16307302 (Version 1)
Quarter: 2019Q2

REPORT INFORMATION
  Report Type: Spontaneous
  Country: US (occurrence: US)
  Receive Date: 20190514
  Receipt Date: 20190514
  Transmission Date: 20190711
  Serious: No
  Sender: FDA-Public Use
  Company Number: US-TEVA-2019-US-1047596

PATIENT
  Sex: Male

DRUGS (1)
  1. BUPRENORPHINE. [Suspect]
     Active Substance: BUPRENORPHINE
     Indication: BACK PAIN
     Dosage: BUPRENORPHINE,20 MCG / HR
     Route: 062

REACTIONS (8)
  - Application site irritation [Unknown]
  - Application site vesicles [Unknown]
  - Application site laceration [Unknown]
  - Application site burn [Unknown]
  - Product quality issue [Unknown]
  - Application site erythema [Unknown]
  - Application site pruritus [Unknown]
  - Application site haemorrhage [Unknown]
